FAERS Safety Report 21571018 (Version 1)
Quarter: 2022Q4

REPORT INFORMATION
  Report Type: Spontaneous
  Country: FR (occurrence: FR)
  Receive Date: 20221109
  Receipt Date: 20221109
  Transmission Date: 20230113
  Serious: Yes (Hospitalization)
  Sender: FDA-Public Use
  Company Number: None

PATIENT
  Age: 75 Year
  Sex: Male
  Weight: 70 kg

DRUGS (41)
  1. FLUOROURACIL [Suspect]
     Active Substance: FLUOROURACIL
     Indication: Adenocarcinoma of colon
     Dosage: STRENGTH:50 MG/ML, 2184 MG OVER 44H
     Dates: start: 20220628, end: 20220628
  2. OXALIPLATIN [Suspect]
     Active Substance: OXALIPLATIN
     Indication: Adenocarcinoma of colon
     Dosage: STRENGTH:5 MG/ML, 124 MG IN 2H
     Dates: start: 20220627, end: 20220627
  3. APREPITANT [Concomitant]
     Active Substance: APREPITANT
     Indication: Prophylaxis of nausea and vomiting
     Dosage: 125 MG D1
     Dates: start: 20220627, end: 20220627
  4. COBALAMIN [Concomitant]
     Active Substance: COBALAMIN
     Indication: Vitamin supplementation
     Dosage: 1 AMPOULE OF 1000 MICROGRAM EVERY MONDAY
     Dates: start: 20170208
  5. LEUCOVORIN CALCIUM [Concomitant]
     Active Substance: LEUCOVORIN CALCIUM
     Indication: Adenocarcinoma of colon
     Dates: start: 20220627, end: 20220627
  6. KAYEXALATE [Concomitant]
     Active Substance: SODIUM POLYSTYRENE SULFONATE
     Indication: Hypercalcaemia
     Dosage: POWDER FOR ORAL,1 MEASURING SPOON ON NON-DIALYSIS DAYS
     Dates: start: 20200518
  7. ONDANSETRON [Concomitant]
     Active Substance: ONDANSETRON
     Indication: Prophylaxis of nausea and vomiting
     Dosage: 8 MG MORNING AND EVENING D1
     Dates: start: 20220627, end: 20220627
  8. PANTOPRAZOLE [Concomitant]
     Active Substance: PANTOPRAZOLE
     Indication: Prophylaxis against gastrointestinal ulcer
     Dosage: 40 MG/D IN THE EVENING
     Dates: start: 20220509
  9. PREDNISONE [Concomitant]
     Active Substance: PREDNISONE
     Indication: Prophylaxis of nausea and vomiting
     Dosage: 80 MG ONCE
     Dates: start: 20220712, end: 20220712
  10. PYRIDOXINE\THIAMINE [Concomitant]
     Active Substance: PYRIDOXINE\THIAMINE
     Indication: Vitamin supplementation
     Dates: start: 20170208
  11. QUESTRAN [Concomitant]
     Active Substance: CHOLESTYRAMINE
     Indication: Hyperlipidaemia
     Dosage: 4 G, ORAL POWDER IN SACHET, 1 MORNING 1 NOON AND 1 EVENING
     Dates: start: 20220509
  12. SODIUM BICARBONATE [Concomitant]
     Active Substance: SODIUM BICARBONATE
     Dosage: 1 GRAM MORNING, NOON AND NIGHT
     Dates: start: 20220713
  13. SEVELAMER [Concomitant]
     Active Substance: SEVELAMER
     Indication: Hyperphosphataemia
     Dosage: 2.4 G
     Dates: start: 20220615
  14. ASCORBIC ACID [Concomitant]
     Active Substance: ASCORBIC ACID
     Indication: Vitamin supplementation
     Dates: start: 20170208
  15. TAHOR [Concomitant]
     Active Substance: ATORVASTATIN CALCIUM
     Indication: Hypercholesterolaemia
     Dosage: 1 TABLET EVERY OTHER DAY, STRENGTH:10 MG
     Dates: start: 20200304
  16. CINACALCET HYDROCHLORIDE [Concomitant]
     Active Substance: CINACALCET HYDROCHLORIDE
     Indication: Hyperparathyroidism secondary
     Dosage: 30 MG DAILY
     Dates: start: 20220415
  17. OROCAL [Concomitant]
     Indication: Mineral supplementation
     Dosage: 500 MG, 1 TABLET AT NOON AND 1 IN THE EVENING
     Dates: start: 20220509
  18. FOLIC ACID [Concomitant]
     Active Substance: FOLIC ACID
     Indication: Vitamin supplementation
     Dosage: 10 MG EVERY MONDAY
     Dates: start: 20220509
  19. FLUOROURACIL [Suspect]
     Active Substance: FLUOROURACIL
     Indication: Adenocarcinoma of colon
     Dosage: STRENGTH:50 MG/ML, 2184 MG OVER 44H
     Dates: start: 20220712, end: 20220712
  20. FLUOROURACIL [Suspect]
     Active Substance: FLUOROURACIL
     Indication: Adenocarcinoma of colon
     Dosage: STRENGTH:50 MG/ML, 2184 MG OVER 44H
     Dates: start: 20220726, end: 20220726
  21. FLUOROURACIL [Suspect]
     Active Substance: FLUOROURACIL
     Indication: Adenocarcinoma of colon
     Dosage: STRENGTH:50 MG/ML, 2184 MG OVER 44H
     Dates: start: 20220613, end: 20220613
  22. PREDNISONE [Concomitant]
     Active Substance: PREDNISONE
     Indication: Prophylaxis of nausea and vomiting
     Dosage: 80 MG ONCE
     Dates: start: 20220726, end: 20220726
  23. PREDNISONE [Concomitant]
     Active Substance: PREDNISONE
     Indication: Prophylaxis of nausea and vomiting
     Dosage: 80 MG ONCE
     Dates: start: 20220627, end: 20220627
  24. PREDNISONE [Concomitant]
     Active Substance: PREDNISONE
     Indication: Prophylaxis of nausea and vomiting
     Dosage: 80 MG ONCE
     Dates: start: 20220613, end: 20220613
  25. ONDANSETRON [Concomitant]
     Active Substance: ONDANSETRON
     Indication: Prophylaxis of nausea and vomiting
     Dosage: 8 MG MORNING AND EVENING D1
     Dates: start: 20220712, end: 20220712
  26. ONDANSETRON [Concomitant]
     Active Substance: ONDANSETRON
     Indication: Prophylaxis of nausea and vomiting
     Dosage: 8 MG MORNING AND EVENING D1
     Dates: start: 20220613, end: 20220613
  27. ONDANSETRON [Concomitant]
     Active Substance: ONDANSETRON
     Indication: Prophylaxis of nausea and vomiting
     Dosage: 8 MG MORNING AND EVENING D1
     Dates: start: 20220726, end: 20220726
  28. LEUCOVORIN CALCIUM [Concomitant]
     Active Substance: LEUCOVORIN CALCIUM
     Indication: Adenocarcinoma of colon
     Dates: start: 20220613, end: 20220613
  29. LEUCOVORIN CALCIUM [Concomitant]
     Active Substance: LEUCOVORIN CALCIUM
     Indication: Adenocarcinoma of colon
     Dates: start: 20220712, end: 20220712
  30. LEUCOVORIN CALCIUM [Concomitant]
     Active Substance: LEUCOVORIN CALCIUM
     Indication: Adenocarcinoma of colon
     Dates: start: 20220726, end: 20220726
  31. OXALIPLATIN [Suspect]
     Active Substance: OXALIPLATIN
     Indication: Adenocarcinoma of colon
     Dosage: STRENGTH:5 MG/ML, 124 MG IN 2H
     Dates: start: 20220712, end: 20220712
  32. OXALIPLATIN [Suspect]
     Active Substance: OXALIPLATIN
     Indication: Adenocarcinoma of colon
     Dosage: STRENGTH:5 MG/ML, 124 MG IN 2H
     Dates: start: 20220613, end: 20220613
  33. OXALIPLATIN [Suspect]
     Active Substance: OXALIPLATIN
     Indication: Adenocarcinoma of colon
     Dosage: STRENGTH:5 MG/ML, 124 MG IN 2H
     Dates: start: 20220712, end: 20220712
  34. OXALIPLATIN [Suspect]
     Active Substance: OXALIPLATIN
     Indication: Adenocarcinoma of colon
     Dosage: STRENGTH:5 MG/ML, 124 MG IN 2H
     Dates: start: 20220726, end: 20220726
  35. APREPITANT [Concomitant]
     Active Substance: APREPITANT
     Indication: Prophylaxis of nausea and vomiting
     Dosage: 125 MG D1
     Dates: start: 20220712, end: 20220712
  36. APREPITANT [Concomitant]
     Active Substance: APREPITANT
     Indication: Prophylaxis of nausea and vomiting
     Dosage: 80 MG/D D2 AND D3
     Dates: start: 20220628, end: 20220629
  37. APREPITANT [Concomitant]
     Active Substance: APREPITANT
     Indication: Prophylaxis of nausea and vomiting
     Dosage: 125 MG/D D1
     Dates: start: 20220726, end: 20220726
  38. APREPITANT [Concomitant]
     Active Substance: APREPITANT
     Indication: Prophylaxis of nausea and vomiting
     Dosage: 80 MG D2 AND D3
     Dates: start: 20220727, end: 20220728
  39. APREPITANT [Concomitant]
     Active Substance: APREPITANT
     Indication: Prophylaxis of nausea and vomiting
     Dosage: 125 MG/D D1
     Dates: start: 20220613, end: 20220613
  40. APREPITANT [Concomitant]
     Active Substance: APREPITANT
     Indication: Prophylaxis of nausea and vomiting
     Dosage: 80 MG D2 AND D3
     Dates: start: 20220713, end: 20220714
  41. APREPITANT [Concomitant]
     Active Substance: APREPITANT
     Indication: Prophylaxis of nausea and vomiting
     Dosage: 80 MG/D D2 AND D3
     Dates: start: 20220614, end: 20220615

REACTIONS (1)
  - Skin ulcer [Not Recovered/Not Resolved]

NARRATIVE: CASE EVENT DATE: 20220801
